FAERS Safety Report 5399971-9 (Version None)
Quarter: 2007Q3

REPORT INFORMATION
  Report Type: 
  Country: None (occurrence: None)
  Receive Date: 20070730
  Receipt Date: 20070716
  Transmission Date: 20080115
  Serious: Yes (Death)
  Sender: FDA-Public Use
  Company Number: FR-BAYER-200710442BFR

PATIENT
  Sex: Female

DRUGS (1)
  1. CIFLOX [Suspect]
     Indication: UNEVALUABLE EVENT
     Route: 048
     Dates: end: 20060628

REACTIONS (1)
  - COMPLETED SUICIDE [None]
